FAERS Safety Report 10005559 (Version 1)
Quarter: 2014Q1

REPORT INFORMATION
  Report Type: Spontaneous
  Country: CO (occurrence: CO)
  Receive Date: 20140313
  Receipt Date: 20140313
  Transmission Date: 20141002
  Serious: Yes (Other)
  Sender: FDA-Public Use
  Company Number: CO-AMGEN-COLSP2014017428

PATIENT
  Age: 70 Year
  Sex: Female

DRUGS (2)
  1. ENBREL [Suspect]
     Indication: RHEUMATOID ARTHRITIS
     Dosage: 50 MG, 2X/WEEK
     Route: 058
     Dates: start: 2012, end: 201402
  2. CLINDAMYCIN HCL [Suspect]
     Indication: CELLULITIS
     Dosage: 300 MG, 3X/DAY
     Route: 065

REACTIONS (2)
  - Diarrhoea [Unknown]
  - Cellulitis [Not Recovered/Not Resolved]
